FAERS Safety Report 4430702-2 (Version None)
Quarter: 2004Q3

REPORT INFORMATION
  Report Type: 
  Country: None (occurrence: None)
  Receive Date: 20040721
  Receipt Date: 20040204
  Transmission Date: 20050211
  Serious: Yes (Other)
  Sender: FDA-Public Use
  Company Number: WAES 0402USA00417

PATIENT

DRUGS (2)
  1. VIOXX [Suspect]
     Dosage: PO
     Route: 048
  2. NAPROSYN [Suspect]

REACTIONS (4)
  - ANAPHYLACTIC REACTION [None]
  - DRUG HYPERSENSITIVITY [None]
  - RASH [None]
  - SWELLING [None]
